FAERS Safety Report 6701507-4 (Version None)
Quarter: 2010Q2

REPORT INFORMATION
  Report Type: 
  Country: None (occurrence: None)
  Receive Date: 20100429
  Receipt Date: 20100420
  Transmission Date: 20101027
  Serious: Yes (Other)
  Sender: FDA-Public Use
  Company Number: US-JNJFOC-20100405370

PATIENT
  Sex: Male

DRUGS (10)
  1. FENTANYL CITRATE [Suspect]
     Indication: BACK PAIN
     Dosage: NDC NUMBER 0781711255
     Route: 062
  2. FENTANYL CITRATE [Suspect]
     Indication: BACK PAIN
     Route: 062
  3. PROZAC [Concomitant]
     Indication: DEPRESSION
     Dosage: PULVULE
     Route: 048
  4. DIOVAN [Concomitant]
     Indication: BLOOD PRESSURE
     Route: 048
  5. ATENOLOL [Concomitant]
     Indication: BLOOD PRESSURE
     Route: 048
  6. ACTOS [Concomitant]
     Indication: DIABETES MELLITUS
     Dosage: PULVULE
     Route: 048
  7. CLONIDINE [Concomitant]
     Indication: DIABETES MELLITUS
     Dosage: 2-4 TIMES DAILY
     Route: 048
  8. SIMVASTATIN [Concomitant]
     Indication: BLOOD CHOLESTEROL
     Route: 048
  9. DOXEPIN HCL [Concomitant]
     Indication: SLEEP DISORDER
     Route: 048
  10. TEMAZEPAM [Concomitant]
     Route: 048

REACTIONS (4)
  - APPLICATION SITE PAIN [None]
  - APPLICATION SITE ULCER [None]
  - THYROID DISORDER [None]
  - WRONG TECHNIQUE IN DRUG USAGE PROCESS [None]
